FAERS Safety Report 6726654-2 (Version None)
Quarter: 2010Q2

REPORT INFORMATION
  Report Type: 
  Country: None (occurrence: None)
  Receive Date: 20100514
  Receipt Date: 20100507
  Transmission Date: 20101027
  Serious: Yes (Death)
  Sender: FDA-Public Use
  Company Number: DK-AMGEN-QUU410927

PATIENT
  Sex: Female
  Weight: 60 kg

DRUGS (3)
  1. NPLATE [Suspect]
     Indication: IDIOPATHIC THROMBOCYTOPENIC PURPURA
     Route: 058
     Dates: start: 20091223
  2. CELLCEPT [Suspect]
     Route: 048
     Dates: start: 20091223
  3. PREDNISOLONE [Concomitant]
     Dates: start: 20071204

REACTIONS (1)
  - DEATH [None]
